FAERS Safety Report 9365209 (Version 1)
Quarter: 2013Q2

REPORT INFORMATION
  Report Type: Spontaneous
  Country: US (occurrence: US)
  Receive Date: 20130624
  Receipt Date: 20130624
  Transmission Date: 20140414
  Serious: Yes (Other)
  Sender: FDA-Public Use
  Company Number: US-SANOFI-AVENTIS-2013SA062635

PATIENT
  Sex: Female
  Weight: 60 kg

DRUGS (8)
  1. PLAVIX [Suspect]
     Indication: CORONARY ARTERY DISEASE
     Dosage: THERAPY START DATE - OVER A YEAR
  2. METOPROLOL [Concomitant]
  3. BUPROPION [Concomitant]
  4. PROZAC [Concomitant]
  5. METHYLPHENIDATE [Concomitant]
  6. TOPAMAX [Concomitant]
  7. ABILIFY [Concomitant]
  8. SIMVASTATIN [Concomitant]

REACTIONS (5)
  - Renal tubular necrosis [Not Recovered/Not Resolved]
  - Blood creatinine increased [Not Recovered/Not Resolved]
  - White blood cell count decreased [Not Recovered/Not Resolved]
  - Anaemia [Not Recovered/Not Resolved]
  - Platelet count decreased [Not Recovered/Not Resolved]
